FAERS Safety Report 24613433 (Version 1)
Quarter: 2024Q4

REPORT INFORMATION
  Report Type: Spontaneous
  Country: US (occurrence: None)
  Receive Date: 20241112
  Receipt Date: 20241112
  Transmission Date: 20250115
  Serious: Yes (Other)
  Sender: Public
  Company Number: None

PATIENT
  Age: 63 Year
  Sex: Female

DRUGS (1)
  1. VALSARTAN [Suspect]
     Active Substance: VALSARTAN

REACTIONS (5)
  - Headache [None]
  - Brain fog [None]
  - Blood pressure increased [None]
  - Heart rate increased [None]
  - Syncope [None]

NARRATIVE: CASE EVENT DATE: 20241109
